FAERS Safety Report 10633792 (Version 1)
Quarter: 2014Q4

REPORT INFORMATION
  Report Type: Other
  Country: GB (occurrence: GB)
  Receive Date: 20141205
  Receipt Date: 20141205
  Transmission Date: 20150529
  Serious: Yes (Other)
  Sender: FDA-Public Use
  Company Number: GB-MYLANLABS-2014M1011878

PATIENT

DRUGS (18)
  1. LANTUS [Concomitant]
     Active Substance: INSULIN GLARGINE
     Dosage: UNK
     Dates: start: 20140728, end: 20141105
  2. LISINOPRIL. [Concomitant]
     Active Substance: LISINOPRIL
     Dosage: UNK
     Dates: start: 20140728
  3. LANSOPRAZOLE. [Concomitant]
     Active Substance: LANSOPRAZOLE
     Dosage: UNK
     Dates: start: 20140728
  4. BISOPROLOL [Suspect]
     Active Substance: BISOPROLOL
     Dosage: UNK
     Dates: start: 20141008
  5. PREGABALIN. [Concomitant]
     Active Substance: PREGABALIN
     Dosage: UNK
     Dates: start: 20140728
  6. ALENDRONIC ACID [Concomitant]
     Active Substance: ALENDRONIC ACID
     Dosage: UNK
     Dates: start: 20140728
  7. FOLIC ACID. [Concomitant]
     Active Substance: FOLIC ACID
     Dosage: UNK
     Dates: start: 20140728
  8. LEVOTHYROXINE [Concomitant]
     Active Substance: LEVOTHYROXINE
     Dosage: UNK
     Dates: start: 20140728
  9. NOVORAPID [Concomitant]
     Active Substance: INSULIN ASPART
     Dosage: UNK
     Dates: start: 20140820, end: 20140917
  10. QUININE [Concomitant]
     Active Substance: QUININE
     Dosage: UNK
     Dates: start: 20140728
  11. THIAMINE [Concomitant]
     Active Substance: THIAMINE
     Dosage: UNK
     Dates: start: 20140728, end: 20141013
  12. VITAMIN B SUBSTANCES [Concomitant]
     Dosage: UNK
     Dates: start: 20140728, end: 20141013
  13. ATORVASTATIN [Concomitant]
     Active Substance: ATORVASTATIN
     Dosage: UNK
     Dates: start: 20140728
  14. ASPIRIN                            /00002701/ [Concomitant]
     Active Substance: ASPIRIN
     Dosage: UNK
     Dates: start: 20140728
  15. CODEINE PHOSPHATE [Concomitant]
     Active Substance: CODEINE PHOSPHATE
     Dosage: UNK
     Dates: start: 20140728
  16. AMITRIPTYLINE HYDROCHLORIDE. [Concomitant]
     Active Substance: AMITRIPTYLINE HYDROCHLORIDE
     Dosage: UNK
     Dates: start: 20140728
  17. AMLODIPINE [Concomitant]
     Active Substance: AMLODIPINE BESYLATE
     Dosage: UNK
     Dates: start: 20141027
  18. ISOSORBIDE MONONITRATE. [Concomitant]
     Active Substance: ISOSORBIDE MONONITRATE
     Dosage: UNK
     Dates: start: 20140728

REACTIONS (3)
  - Generalised oedema [Recovering/Resolving]
  - Swelling face [Recovering/Resolving]
  - Peripheral swelling [Recovering/Resolving]

NARRATIVE: CASE EVENT DATE: 20141114
